FAERS Safety Report 23675798 (Version 3)
Quarter: 2024Q2

REPORT INFORMATION
  Report Type: Report from Study
  Country: US (occurrence: US)
  Receive Date: 20240327
  Receipt Date: 20240425
  Transmission Date: 20240716
  Serious: No
  Sender: FDA-Public Use
  Company Number: US-LUNDBECK-DKLU3075410

PATIENT
  Age: 74 Year
  Sex: Female
  Weight: 72.57 kg

DRUGS (1)
  1. VYEPTI [Suspect]
     Active Substance: EPTINEZUMAB-JJMR
     Indication: Migraine
     Route: 041
     Dates: start: 20240306

REACTIONS (2)
  - Feeling abnormal [Unknown]
  - Therapeutic product effect decreased [Not Recovered/Not Resolved]
